FAERS Safety Report 14301816 (Version 1)
Quarter: 2017Q4

REPORT INFORMATION
  Report Type: Spontaneous
  Country: US (occurrence: US)
  Receive Date: 20171219
  Receipt Date: 20171219
  Transmission Date: 20180321
  Serious: No
  Sender: FDA-Public Use
  Company Number: US-SUPERNUS PHARMACEUTICALS, INC.-2017SUP00184

PATIENT
  Sex: Female

DRUGS (1)
  1. OXTELLAR XR [Suspect]
     Active Substance: OXCARBAZEPINE
     Indication: TRIGEMINAL NEURALGIA
     Dosage: 150 MG, UNK

REACTIONS (10)
  - Rhinorrhoea [Unknown]
  - Restlessness [Unknown]
  - Fatigue [Unknown]
  - Asthenia [Unknown]
  - Pyrexia [Unknown]
  - Hypotension [Unknown]
  - Malaise [Unknown]
  - Cough [Unknown]
  - Off label use [Unknown]
  - Nasopharyngitis [Unknown]

NARRATIVE: CASE EVENT DATE: 201706
